FAERS Safety Report 7773748-9 (Version None)
Quarter: 2011Q3

REPORT INFORMATION
  Report Type: 
  Country: None (occurrence: None)
  Receive Date: 20110921
  Receipt Date: 20110906
  Transmission Date: 20111222
  Serious: Yes (Hospitalization)
  Sender: FDA-Public Use
  Company Number: VALP20110010

PATIENT
  Age: 21 Year
  Sex: Male

DRUGS (1)
  1. VALPROIC ACID [Suspect]
     Indication: PRODUCT USED FOR UNKNOWN INDICATION
     Dosage: 30000-3400 MG, ONCE, ORAL; 800 MG, 2 IN 1 D, ORL
     Route: 048

REACTIONS (12)
  - METABOLIC ACIDOSIS [None]
  - HYPERAMMONAEMIA [None]
  - RESPIRATORY ACIDOSIS [None]
  - BLOOD GLUCOSE DECREASED [None]
  - MIOSIS [None]
  - HEADACHE [None]
  - COMA [None]
  - OVERDOSE [None]
  - AGITATION [None]
  - PUPILLARY REFLEX IMPAIRED [None]
  - HAEMODIALYSIS [None]
  - HYPOTENSION [None]
